FAERS Safety Report 10189835 (Version 1)
Quarter: 2014Q2

REPORT INFORMATION
  Report Type: Spontaneous
  Country: US (occurrence: US)
  Receive Date: 20140522
  Receipt Date: 20140522
  Transmission Date: 20141212
  Serious: Yes (Other)
  Sender: FDA-Public Use
  Company Number: US-SANOFI-AVENTIS-2013SA061181

PATIENT
  Age: 67 Year
  Sex: Female

DRUGS (2)
  1. LANTUS SOLOSTAR [Suspect]
     Indication: TYPE 2 DIABETES MELLITUS
     Dosage: PRODUCT START DATE: 3-4 YEARS AGO DOSE:35 UNIT(S)
     Route: 051
  2. SOLOSTAR [Suspect]
     Dosage: PRODUCT START DATE: 3-4 YEARS AGO

REACTIONS (2)
  - Retinopathy [Unknown]
  - Visual acuity reduced [Unknown]
